FAERS Safety Report 8348924-7 (Version None)
Quarter: 2012Q2

REPORT INFORMATION
  Report Type: 
  Country: None (occurrence: None)
  Receive Date: 20120508
  Receipt Date: 20120503
  Transmission Date: 20120825
  Serious: Yes (Death, Other)
  Sender: FDA-Public Use
  Company Number: 2012SP023744

PATIENT
  Age: 48 Year
  Sex: Male

DRUGS (2)
  1. EFFEXOR [Concomitant]
  2. REMERON [Suspect]

REACTIONS (5)
  - WITHDRAWAL SYNDROME [None]
  - TREMOR [None]
  - COMPLETED SUICIDE [None]
  - DIZZINESS [None]
  - AGITATION [None]
